FAERS Safety Report 6153544-9 (Version None)
Quarter: 2009Q2

REPORT INFORMATION
  Report Type: 
  Country: None (occurrence: None)
  Receive Date: 20090413
  Receipt Date: 20090410
  Transmission Date: 20091009
  Serious: Yes (Death, Other)
  Sender: FDA-Public Use
  Company Number: US-ASTRAZENECA-2008UW27527

PATIENT
  Age: 837 Month
  Sex: Female
  Weight: 95.3 kg

DRUGS (1)
  1. SEROQUEL [Suspect]
     Indication: INJURY
     Route: 048
     Dates: start: 20051001, end: 20061001

REACTIONS (7)
  - ASCITES [None]
  - CYSTITIS [None]
  - DIABETES MELLITUS [None]
  - FISTULA [None]
  - PANCREATITIS [None]
  - PLEURAL EFFUSION [None]
  - URINARY TRACT INFECTION [None]
